FAERS Safety Report 25222830 (Version 1)
Quarter: 2025Q2

REPORT INFORMATION
  Report Type: Report from Study
  Country: US (occurrence: US)
  Receive Date: 20250422
  Receipt Date: 20250422
  Transmission Date: 20250717
  Serious: Yes (Other)
  Sender: NOVARTIS
  Company Number: US-002147023-NVSC2024US099821

PATIENT
  Sex: Female

DRUGS (2)
  1. KESIMPTA [Suspect]
     Active Substance: OFATUMUMAB
     Indication: Relapsing multiple sclerosis
     Route: 065
     Dates: start: 20240409
  2. BENADRYL [Concomitant]
     Active Substance: DIPHENHYDRAMINE HYDROCHLORIDE
     Indication: Premedication
     Route: 065

REACTIONS (8)
  - Multiple sclerosis [Unknown]
  - Fatigue [Unknown]
  - Feeling hot [Unknown]
  - Injection site pain [Unknown]
  - Product packaging issue [Unknown]
  - Bradykinesia [Unknown]
  - Nausea [Unknown]
  - Feeling abnormal [Unknown]
